FAERS Safety Report 10219409 (Version 10)
Quarter: 2016Q1

REPORT INFORMATION
  Report Type: Spontaneous
  Country: CA (occurrence: CA)
  Receive Date: 20140605
  Receipt Date: 20160325
  Transmission Date: 20160525
  Serious: Yes (Hospitalization, Disabling, Other)
  Sender: FDA-Public Use
  Company Number: CA-GLAXOSMITHKLINE-A1072352A

PATIENT
  Age: 60 Year
  Sex: Female
  Weight: 94 kg

DRUGS (5)
  1. BENLYSTA [Suspect]
     Active Substance: BELIMUMAB
     Dosage: 900 MG, UNK
     Route: 042
  2. PREDNISONE. [Suspect]
     Active Substance: PREDNISONE
     Indication: PRODUCT USED FOR UNKNOWN INDICATION
     Dosage: 2.5 MG, 1D
     Route: 048
     Dates: start: 20140401
  3. BENLYSTA [Suspect]
     Active Substance: BELIMUMAB
     Indication: SYSTEMIC LUPUS ERYTHEMATOSUS
     Dosage: WEEKLY INFUSION AT WEEK 0, 2, 4 AND THEN EVERY 4 WEEKS
     Route: 042
     Dates: start: 20140401
  4. BENLYSTA [Suspect]
     Active Substance: BELIMUMAB
     Dosage: 900 MG, UNK
     Route: 042
  5. BENLYSTA [Suspect]
     Active Substance: BELIMUMAB
     Dosage: 900 MG, UNK
     Route: 042

REACTIONS (14)
  - Systemic lupus erythematosus [Recovered/Resolved]
  - Contusion [Recovering/Resolving]
  - Blood insulin abnormal [Not Recovered/Not Resolved]
  - Laceration [Unknown]
  - Hospitalisation [Unknown]
  - Fall [Recovering/Resolving]
  - Cellulitis [Recovered/Resolved]
  - Gait disturbance [Unknown]
  - Chronic obstructive pulmonary disease [Recovered/Resolved]
  - Disability [Not Recovered/Not Resolved]
  - Ill-defined disorder [Unknown]
  - Dehydration [Recovered/Resolved]
  - Neck pain [Recovering/Resolving]
  - Fatigue [Unknown]

NARRATIVE: CASE EVENT DATE: 20140523
